FAERS Safety Report 26060173 (Version 1)
Quarter: 2025Q4

REPORT INFORMATION
  Report Type: Spontaneous
  Country: US (occurrence: US)
  Receive Date: 20251118
  Receipt Date: 20251118
  Transmission Date: 20260117
  Serious: Yes (Other)
  Sender: PFIZER
  Company Number: US-PFIZER INC-202500221447

PATIENT
  Age: 39 Year
  Sex: Female
  Weight: 68.036 kg

DRUGS (6)
  1. PRISTIQ EXTENDED-RELEASE [Suspect]
     Active Substance: DESVENLAFAXINE SUCCINATE
     Indication: Anxiety
     Dosage: 50 MG
  2. PRISTIQ EXTENDED-RELEASE [Suspect]
     Active Substance: DESVENLAFAXINE SUCCINATE
     Indication: Depression
     Dosage: 100MG ONCE A DAY
     Route: 048
     Dates: start: 20240209
  3. PRISTIQ EXTENDED-RELEASE [Suspect]
     Active Substance: DESVENLAFAXINE SUCCINATE
     Indication: Post-traumatic stress disorder
  4. COSENTYX [Suspect]
     Active Substance: SECUKINUMAB
     Dosage: UNK
  5. SKYRIZI [Concomitant]
     Active Substance: RISANKIZUMAB-RZAA
     Indication: Arthritis
     Dosage: UNK
  6. SKYRIZI [Concomitant]
     Active Substance: RISANKIZUMAB-RZAA
     Indication: Psoriasis

REACTIONS (10)
  - Appendicitis [Recovered/Resolved]
  - Urticaria [Not Recovered/Not Resolved]
  - Uterine pain [Unknown]
  - Antinuclear antibody positive [Not Recovered/Not Resolved]
  - Photosensitivity reaction [Unknown]
  - Sinusitis [Not Recovered/Not Resolved]
  - Migraine [Unknown]
  - Weight increased [Unknown]
  - Muscular weakness [Unknown]
  - Pain [Not Recovered/Not Resolved]

NARRATIVE: CASE EVENT DATE: 20240101
